FAERS Safety Report 6021780-8 (Version None)
Quarter: 2008Q4

REPORT INFORMATION
  Report Type: 
  Country: None (occurrence: None)
  Receive Date: 20081229
  Receipt Date: 20081217
  Transmission Date: 20090506
  Serious: Yes (Hospitalization)
  Sender: FDA-Public Use
  Company Number: JP-AVENTIS-200813910JP

PATIENT
  Age: 59 Year
  Sex: Female

DRUGS (1)
  1. INSULIN GLARGINE [Suspect]
     Indication: TYPE 1 DIABETES MELLITUS
     Route: 058

REACTIONS (6)
  - ALTERED STATE OF CONSCIOUSNESS [None]
  - ANTI-INSULIN ANTIBODY POSITIVE [None]
  - GLYCOSYLATED HAEMOGLOBIN INCREASED [None]
  - HYPOGLYCAEMIA [None]
  - INSULIN AUTOIMMUNE SYNDROME [None]
  - KETOACIDOSIS [None]
